FAERS Safety Report 9524121 (Version 1)
Quarter: 2013Q3

REPORT INFORMATION
  Report Type: Spontaneous
  Country: NO (occurrence: None)
  Receive Date: 20130912
  Receipt Date: 20130912
  Transmission Date: 20140515
  Serious: Yes (Other)
  Sender: FDA-Public Use
  Company Number: NGX_01958_2013

PATIENT
  Sex: Female

DRUGS (1)
  1. QUTENZA [Suspect]
     Indication: MERALGIA PARAESTHETICA
     Dosage: 1 DF TREATMENT, APPLIED TO THE THIGH
     Route: 061
     Dates: start: 20130829, end: 20130829

REACTIONS (2)
  - Hypersensitivity [None]
  - Pain [None]
